FAERS Safety Report 25045744 (Version 2)
Quarter: 2025Q4

REPORT INFORMATION
  Report Type: Spontaneous
  Country: US (occurrence: US)
  Receive Date: 20250306
  Receipt Date: 20251010
  Transmission Date: 20260118
  Serious: No
  Sender: DAIICHI
  Company Number: US-DAIICHI SANKYO, INC.-DS-2025-128832-USAA

PATIENT
  Age: 54 Year
  Sex: Male

DRUGS (2)
  1. VANFLYTA [Suspect]
     Active Substance: QUIZARTINIB DIHYDROCHLORIDE
     Indication: Acute myeloid leukaemia
     Dosage: 26.5 MGTAKE 2  TABLETS BY  MOUTH ONCE  DAILY AT THE  SAME TIME.
     Route: 048
     Dates: start: 20250421
  2. NOXAFIL [Suspect]
     Active Substance: POSACONAZOLE
     Indication: Product used for unknown indication
     Dosage: UNK
     Route: 065

REACTIONS (3)
  - Diverticulitis [Not Recovered/Not Resolved]
  - Drug interaction [Unknown]
  - Pain [Recovering/Resolving]

NARRATIVE: CASE EVENT DATE: 20250922
